FAERS Safety Report 5975063-2 (Version None)
Quarter: 2008Q4

REPORT INFORMATION
  Report Type: 
  Country: None (occurrence: None)
  Receive Date: 20081202
  Receipt Date: 20081126
  Transmission Date: 20090506
  Serious: Yes (Other)
  Sender: FDA-Public Use
  Company Number: FR-BRISTOL-MYERS SQUIBB COMPANY-14423107

PATIENT
  Age: 23 Year
  Sex: Male

DRUGS (1)
  1. ABILIFY [Suspect]
     Indication: SCHIZOPHRENIA
     Dosage: 1 DOSAGE FORM= 7 TABS;ABILIFY 10 MG/DAY.

REACTIONS (2)
  - DRUG ABUSE [None]
  - OVERDOSE [None]
